FAERS Safety Report 19366616 (Version 3)
Quarter: 2022Q1

REPORT INFORMATION
  Report Type: Spontaneous
  Country: JP (occurrence: JP)
  Receive Date: 20210603
  Receipt Date: 20211110
  Transmission Date: 20220424
  Serious: Yes (Other)
  Sender: FDA-Public Use
  Company Number: JP-BRISTOL-MYERS SQUIBB COMPANY-BMS-2021-052123

PATIENT

DRUGS (1)
  1. EMPLICITI [Suspect]
     Active Substance: ELOTUZUMAB
     Indication: Plasma cell myeloma
     Dosage: UNAVAILABLE
     Route: 041

REACTIONS (1)
  - Pancreatitis [Recovered/Resolved]
